FAERS Safety Report 13101867 (Version 2)
Quarter: 2017Q1

REPORT INFORMATION
  Report Type: Spontaneous
  Country: US (occurrence: US)
  Receive Date: 20170110
  Receipt Date: 20170222
  Transmission Date: 20170428
  Serious: No
  Sender: FDA-Public Use
  Company Number: US-PFIZER INC-2017006275

PATIENT
  Sex: Male

DRUGS (1)
  1. AMLODIPINE BESILATE [Suspect]
     Active Substance: AMLODIPINE BESYLATE
     Indication: BLOOD PRESSURE MEASUREMENT
     Dosage: UNK

REACTIONS (4)
  - Feeling abnormal [Unknown]
  - Hypoaesthesia oral [Unknown]
  - Choking sensation [Unknown]
  - Swollen tongue [Unknown]
